FAERS Safety Report 19132088 (Version 1)
Quarter: 2021Q2

REPORT INFORMATION
  Report Type: Spontaneous
  Country: US (occurrence: US)
  Receive Date: 20210414
  Receipt Date: 20210414
  Transmission Date: 20210717
  Serious: No
  Sender: FDA-Public Use
  Company Number: US-ALLERGAN-2040763US

PATIENT
  Sex: Female

DRUGS (4)
  1. LUMIGAN [Suspect]
     Active Substance: BIMATOPROST
     Indication: GLAUCOMA
     Dosage: 2 GTT, QHS
     Route: 047
     Dates: start: 20191104
  2. TIMOLOL. [Concomitant]
     Active Substance: TIMOLOL
     Indication: GLAUCOMA
     Dosage: UNK
     Route: 047
     Dates: start: 20200807
  3. LUMIGAN [Suspect]
     Active Substance: BIMATOPROST
     Dosage: 2 GTT, QAM
     Route: 047
  4. LUMIGAN [Suspect]
     Active Substance: BIMATOPROST
     Dosage: 1 DROP TO EACH EYE AT BEDTIME
     Route: 047
     Dates: start: 2015

REACTIONS (8)
  - Product use complaint [Unknown]
  - Product dispensing error [Unknown]
  - Product dose omission issue [Unknown]
  - Intraocular pressure increased [Unknown]
  - Product primary packaging issue [Unknown]
  - Movement disorder [Not Recovered/Not Resolved]
  - Inappropriate schedule of product administration [Unknown]
  - Drug ineffective [Unknown]
